FAERS Safety Report 14577918 (Version 2)
Quarter: 2018Q2

REPORT INFORMATION
  Report Type: Report from Study
  Country: DE (occurrence: DE)
  Receive Date: 20180227
  Receipt Date: 20180411
  Transmission Date: 20180711
  Serious: Yes (Hospitalization)
  Sender: FDA-Public Use
  Company Number: DE-B. BRAUN MEDICAL INC.-2042633

PATIENT
  Age: 57 Year
  Sex: Male
  Weight: 116 kg

DRUGS (3)
  1. METRONIDAZOLE INJECTION USP (5 MG/ML) IN PAB? PLASTIC CONTAINER [Suspect]
     Active Substance: METRONIDAZOLE
     Indication: CROHN^S DISEASE
     Route: 065
  2. MLN0002 [Suspect]
     Active Substance: VEDOLIZUMAB
     Route: 042
     Dates: start: 20171206
  3. BUDESONIDE. [Suspect]
     Active Substance: BUDESONIDE
     Route: 065
     Dates: start: 20171020, end: 20180116

REACTIONS (16)
  - Parosmia [Recovered/Resolved]
  - Paraesthesia [Recovered/Resolved]
  - Ear disorder [Recovered/Resolved]
  - Diarrhoea [Recovered/Resolved]
  - Head discomfort [Recovered/Resolved]
  - Dysphonia [Recovered/Resolved]
  - Hypertension [None]
  - Muscle spasms [None]
  - Hypoacusis [None]
  - Dysaesthesia [Recovered/Resolved]
  - Cardiovascular disorder [Recovered/Resolved]
  - Hyperglycaemia [None]
  - Nervous system disorder [None]
  - Feeling hot [Recovered/Resolved]
  - Dizziness [Recovered/Resolved]
  - Nausea [None]

NARRATIVE: CASE EVENT DATE: 201711
